FAERS Safety Report 7517902-X (Version None)
Quarter: 2011Q2

REPORT INFORMATION
  Report Type: 
  Country: None (occurrence: None)
  Receive Date: 20110527
  Receipt Date: 20110527
  Transmission Date: 20111010
  Serious: Yes (Other)
  Sender: FDA-Public Use
  Company Number: None

PATIENT
  Sex: Female
  Weight: 81.6475 kg

DRUGS (1)
  1. METOPROLOL SUCCINATE EXTENDED RELEASE [Suspect]
     Dosage: ONE TABLET TWICE DAILY PO
     Route: 048
     Dates: start: 20110411, end: 20110510

REACTIONS (3)
  - PRODUCT SUBSTITUTION ISSUE [None]
  - DRY MOUTH [None]
  - CHOKING SENSATION [None]
